FAERS Safety Report 5075855-0 (Version None)
Quarter: 2006Q3

REPORT INFORMATION
  Report Type: 
  Country: None (occurrence: None)
  Receive Date: 20060809
  Receipt Date: 20060106
  Transmission Date: 20061208
  Serious: No
  Sender: FDA-Public Use
  Company Number: US-AMGEN-US163891

PATIENT
  Sex: Male

DRUGS (7)
  1. EPOGEN [Suspect]
     Indication: DIALYSIS
     Route: 042
  2. PLAVIX [Concomitant]
     Dates: start: 20021207
  3. METOPROLOL TARTRATE [Concomitant]
     Dates: start: 20021207
  4. PHOSLO [Concomitant]
  5. DIATX [Concomitant]
     Dates: start: 20021203
  6. HECTORAL [Concomitant]
     Route: 042
  7. CARNICOR [Concomitant]
     Route: 042

REACTIONS (1)
  - THERAPEUTIC RESPONSE DECREASED [None]
